FAERS Safety Report 15619002 (Version 1)
Quarter: 2018Q4

REPORT INFORMATION
  Report Type: Spontaneous
  Country: US (occurrence: US)
  Receive Date: 20181114
  Receipt Date: 20181114
  Transmission Date: 20190205
  Serious: Yes (Disabling)
  Sender: FDA-Public Use
  Company Number: None

PATIENT
  Age: 53 Year
  Sex: Female

DRUGS (2)
  1. CIPROFLOXACIN HCL 500MG [Suspect]
     Active Substance: CIPROFLOXACIN HYDROCHLORIDE
     Indication: URINARY TRACT INFECTION
     Route: 048
     Dates: start: 20080102
  2. TYLENOL [Concomitant]
     Active Substance: ACETAMINOPHEN

REACTIONS (20)
  - Neuropathy peripheral [None]
  - Paraesthesia [None]
  - Intervertebral disc protrusion [None]
  - Thyroid mass [None]
  - Product complaint [None]
  - Panic attack [None]
  - Bipolar disorder [None]
  - Gastric disorder [None]
  - Bladder disorder [None]
  - Liver disorder [None]
  - Blood urine present [None]
  - Pain in extremity [None]
  - Fibromyalgia [None]
  - Migraine [None]
  - Depression [None]
  - Anxiety [None]
  - Goitre [None]
  - Impaired quality of life [None]
  - Pain [None]
  - Photophobia [None]

NARRATIVE: CASE EVENT DATE: 20141107
